FAERS Safety Report 13611654 (Version 1)
Quarter: 2017Q2

REPORT INFORMATION
  Report Type: Spontaneous
  Country: RS (occurrence: RS)
  Receive Date: 20170605
  Receipt Date: 20170605
  Transmission Date: 20170830
  Serious: Yes (Death)
  Sender: FDA-Public Use
  Company Number: RS-JUBILANT CADISTA PHARMACEUTICALS-2017JUB00172

PATIENT
  Sex: Female

DRUGS (2)
  1. BENZODIAZEPINES [Suspect]
     Active Substance: BENZODIAZEPINE
     Route: 048
  2. LAMOTRIGINE. [Suspect]
     Active Substance: LAMOTRIGINE
     Route: 048

REACTIONS (3)
  - Acute respiratory distress syndrome [Fatal]
  - Intentional overdose [Fatal]
  - Toxicity to various agents [Fatal]
